FAERS Safety Report 5587965-X (Version None)
Quarter: 2008Q1

REPORT INFORMATION
  Report Type: 
  Country: None (occurrence: None)
  Receive Date: 20080108
  Receipt Date: 20071225
  Transmission Date: 20080703
  Serious: Yes (Death, Hospitalization)
  Sender: FDA-Public Use
  Company Number: 2007AP001536

PATIENT
  Age: 36 Year
  Sex: Male

DRUGS (5)
  1. CARBAMAZEPINE [Suspect]
     Dosage: 400 MG; BID
  2. BENZTROPINE MESYLATE [Suspect]
     Dosage: 2 MG; HS
  3. ZUCLOPENTHIXOL (ZUCLOPENTHIXOL) [Suspect]
     Indication: SCHIZOAFFECTIVE DISORDER
     Dosage: 20 MG; HS
  4. QUETIAPINE FUMARATE [Suspect]
     Indication: SCHIZOAFFECTIVE DISORDER
     Dosage: 1000 MG; HS
  5. LEVOTHYROXINE SODIUM [Suspect]
     Dosage: 0.05 MG; QD

REACTIONS (22)
  - ACTIVATED PARTIAL THROMBOPLASTIN TIME PROLONGED [None]
  - BLOOD CREATINE PHOSPHOKINASE INCREASED [None]
  - CARDIAC ARREST [None]
  - COMA [None]
  - DISSEMINATED INTRAVASCULAR COAGULATION [None]
  - FALL [None]
  - GASTRIC DISORDER [None]
  - HEADACHE [None]
  - HEAT STROKE [None]
  - INCOHERENT [None]
  - INTERNATIONAL NORMALISED RATIO INCREASED [None]
  - LIVER DISORDER [None]
  - LOSS OF CONSCIOUSNESS [None]
  - METABOLIC ACIDOSIS [None]
  - NASAL DISORDER [None]
  - RENAL DISORDER [None]
  - RENAL FAILURE [None]
  - RESPIRATORY ACIDOSIS [None]
  - RESPIRATORY FAILURE [None]
  - SHOCK [None]
  - SPEECH DISORDER [None]
  - TACHYCARDIA [None]
